FAERS Safety Report 11628115 (Version 1)
Quarter: 2015Q4

REPORT INFORMATION
  Report Type: Spontaneous
  Country: US (occurrence: None)
  Receive Date: 20151013
  Receipt Date: 20151013
  Transmission Date: 20160304
  Serious: Yes (Other)
  Sender: FDA-Public Use
  Company Number: None

PATIENT
  Age: 63 Year
  Sex: Female
  Weight: 65.77 kg

DRUGS (3)
  1. LEVAQUIN [Suspect]
     Active Substance: LEVOFLOXACIN
     Indication: URINARY TRACT INFECTION
     Dosage: TAKEN BY MOUTH
     Dates: start: 20150914, end: 20150916
  2. CENTRUM MULTIPLE VITAMINS [Concomitant]
  3. CALTRATE C WITH D [Concomitant]

REACTIONS (5)
  - Anxiety [None]
  - Myalgia [None]
  - Asthenia [None]
  - Tendon pain [None]
  - Neuropathy peripheral [None]

NARRATIVE: CASE EVENT DATE: 20150915
